FAERS Safety Report 5601865-8 (Version None)
Quarter: 2008Q1

REPORT INFORMATION
  Report Type: 
  Country: None (occurrence: None)
  Receive Date: 20080124
  Receipt Date: 20080112
  Transmission Date: 20080703
  Serious: Yes (Other)
  Sender: FDA-Public Use
  Company Number: US-PFIZER INC-2008004599

PATIENT
  Sex: Male
  Weight: 78.5 kg

DRUGS (9)
  1. CHANTIX [Suspect]
     Indication: SMOKING CESSATION THERAPY
     Route: 048
  2. TRILEPTAL [Concomitant]
     Indication: BIPOLAR DISORDER
  3. BUPROPION HCL [Concomitant]
     Indication: BIPOLAR DISORDER
  4. TERAZOSIN HCL [Concomitant]
     Indication: PROSTATITIS
  5. PROTONIX [Concomitant]
     Indication: GASTROOESOPHAGEAL REFLUX DISEASE
  6. HYDROCHLOROTHIAZIDE [Concomitant]
     Indication: BLOOD PRESSURE
  7. ALLOPURINOL [Concomitant]
     Indication: NEPHROLITHIASIS
  8. VITAMIN CAP [Concomitant]
  9. ASPIRIN [Concomitant]

REACTIONS (2)
  - JOINT SWELLING [None]
  - PAIN [None]
